FAERS Safety Report 5924194-1 (Version None)
Quarter: 2008Q4

REPORT INFORMATION
  Report Type: 
  Country: None (occurrence: None)
  Receive Date: 20081020
  Receipt Date: 20081008
  Transmission Date: 20090506
  Serious: Yes (Other)
  Sender: FDA-Public Use
  Company Number: US-ELI_LILLY_AND_COMPANY-US200810001947

PATIENT
  Sex: Female

DRUGS (2)
  1. EVISTA [Suspect]
     Dosage: UNK, UNKNOWN
     Route: 065
     Dates: start: 19990101, end: 20040101
  2. EVISTA [Suspect]
     Dosage: UNK, UNKNOWN
     Route: 065
     Dates: start: 20050101, end: 20080401

REACTIONS (4)
  - MASS [None]
  - PLASTIC SURGERY TO THE FACE [None]
  - SQUAMOUS CELL CARCINOMA [None]
  - THYROID CANCER [None]
